FAERS Safety Report 13291230 (Version 1)
Quarter: 2017Q1

REPORT INFORMATION
  Report Type: Spontaneous
  Country: HR (occurrence: HR)
  Receive Date: 20170303
  Receipt Date: 20170303
  Transmission Date: 20170428
  Serious: Yes (Other)
  Sender: FDA-Public Use
  Company Number: PHHY2017HR027837

PATIENT
  Age: 60 Year
  Sex: Male

DRUGS (24)
  1. SANDIMMUN NEORAL [Suspect]
     Active Substance: CYCLOSPORINE
     Dosage: 50 MG, UNK
     Route: 065
     Dates: end: 201505
  2. SANDIMMUN NEORAL [Suspect]
     Active Substance: CYCLOSPORINE
     Dosage: 300 MG (2 X150 MG)
     Route: 065
     Dates: start: 20151026
  3. SANDIMMUN NEORAL [Suspect]
     Active Substance: CYCLOSPORINE
     Dosage: UNK
  4. SECUKINUMAB [Concomitant]
     Active Substance: SECUKINUMAB
     Dosage: 300 MG, UNK
     Route: 058
     Dates: start: 20170131
  5. STELARA [Concomitant]
     Active Substance: USTEKINUMAB
     Dosage: UNK
     Route: 058
     Dates: start: 20151026
  6. SANDIMMUN NEORAL [Suspect]
     Active Substance: CYCLOSPORINE
     Dosage: 100 MG (2 X50 MG)
     Route: 065
     Dates: start: 20150123
  7. SECUKINUMAB [Concomitant]
     Active Substance: SECUKINUMAB
     Indication: PSORIASIS
     Dosage: 300 MG, UNK
     Route: 058
     Dates: start: 20161011
  8. SECUKINUMAB [Concomitant]
     Active Substance: SECUKINUMAB
     Dosage: 300 MG, UNK
     Route: 058
     Dates: start: 20161018
  9. SECUKINUMAB [Concomitant]
     Active Substance: SECUKINUMAB
     Dosage: 300 MG, UNK
     Route: 058
     Dates: start: 20161108
  10. BELODERM [Concomitant]
     Active Substance: BETAMETHASONE DIPROPIONATE
     Indication: PSORIASIS
     Dosage: 60 OT, UNK
  11. SANDIMMUN NEORAL [Suspect]
     Active Substance: CYCLOSPORINE
     Dosage: 50 MG, QD (1.2 MG/KG)
     Route: 065
     Dates: start: 20161018, end: 20161031
  12. SECUKINUMAB [Concomitant]
     Active Substance: SECUKINUMAB
     Dosage: 300 MG, UNK
     Route: 058
     Dates: start: 20170103
  13. STELARA [Concomitant]
     Active Substance: USTEKINUMAB
     Indication: PRODUCT USED FOR UNKNOWN INDICATION
     Dosage: 90 MG, UNK
     Route: 058
     Dates: start: 201506, end: 201510
  14. MDS [Concomitant]
     Indication: PSORIASIS
     Dosage: BID (2 XDAY)
     Route: 061
  15. SANDIMMUN NEORAL [Suspect]
     Active Substance: CYCLOSPORINE
     Dosage: 200 MG, UNK
     Route: 065
     Dates: start: 20140822
  16. SANDIMMUN NEORAL [Suspect]
     Active Substance: CYCLOSPORINE
     Dosage: 75 MG, QD (50 MG IN THE MORNING AND 25 MG IN THE EVENING)
     Route: 065
     Dates: start: 20150318
  17. SANDIMMUN NEORAL [Suspect]
     Active Substance: CYCLOSPORINE
     Dosage: 100 MG, QD (1.2 MG/KG)
     Route: 065
     Dates: start: 20161011
  18. SANDIMMUN NEORAL [Suspect]
     Active Substance: CYCLOSPORINE
     Indication: PSORIASIS
     Dosage: 200 MG, UNK (2 X 100 MG)
     Route: 065
     Dates: start: 20140204
  19. SECUKINUMAB [Concomitant]
     Active Substance: SECUKINUMAB
     Dosage: 300 MG, UNK
     Route: 058
     Dates: start: 20161206
  20. NEUTRAL [Concomitant]
     Indication: PRODUCT USED FOR UNKNOWN INDICATION
     Route: 065
  21. SANDIMMUN NEORAL [Suspect]
     Active Substance: CYCLOSPORINE
     Dosage: 250 MG, QD (3.2 MG / KG / DAY)
     Route: 065
     Dates: start: 201509
  22. KLAVOCIN [Concomitant]
     Active Substance: AMOXICILLIN\CLAVULANIC ACID
     Indication: PSORIASIS
     Dosage: 2 G, BID
     Route: 065
  23. SANDIMMUN NEORAL [Suspect]
     Active Substance: CYCLOSPORINE
     Dosage: UNK
     Route: 065
  24. SANDIMMUN NEORAL [Suspect]
     Active Substance: CYCLOSPORINE
     Dosage: 150 MG, QD (100 MG IN THE MORNING AND 50 MG IN THE EVENING)
     Route: 065
     Dates: start: 20140318

REACTIONS (20)
  - Hypertension [Recovered/Resolved]
  - Blood cholesterol increased [Unknown]
  - C-reactive protein increased [Unknown]
  - Hyperkeratosis [Unknown]
  - Glomerular filtration rate decreased [Unknown]
  - Red blood cell sedimentation rate increased [Unknown]
  - Transient ischaemic attack [Unknown]
  - Prostatomegaly [Unknown]
  - Prostatic specific antigen increased [Unknown]
  - Nephropathy toxic [Unknown]
  - Blood urea increased [Recovered/Resolved]
  - Low density lipoprotein increased [Unknown]
  - Blood uric acid increased [Unknown]
  - Lipids decreased [Unknown]
  - Blood glucose increased [Unknown]
  - Gamma-glutamyltransferase increased [Unknown]
  - Blood creatinine increased [Recovered/Resolved]
  - Hypertension [Unknown]
  - Red blood cell count decreased [Unknown]
  - Blood triglycerides increased [Unknown]

NARRATIVE: CASE EVENT DATE: 2014
